FAERS Safety Report 10992127 (Version 7)
Quarter: 2016Q3

REPORT INFORMATION
  Report Type: Report from Study
  Country: JP (occurrence: JP)
  Receive Date: 20150406
  Receipt Date: 20160816
  Transmission Date: 20161109
  Serious: Yes (Death, Life-Threatening, Hospitalization, Congenital Anomaly, Other)
  Sender: FDA-Public Use
  Company Number: JP-GILEAD-2015-0146725

PATIENT
  Age: 11 Year
  Sex: Male
  Weight: 30.7 kg

DRUGS (20)
  1. FUROSEMIDE. [Concomitant]
     Active Substance: FUROSEMIDE
     Indication: OXYGEN SATURATION DECREASED
     Dosage: 20 MG, BID
     Dates: end: 20151105
  2. AMBRISENTAN [Suspect]
     Active Substance: AMBRISENTAN
     Indication: OXYGEN SATURATION DECREASED
     Dosage: 1.5 MG, BID
     Route: 048
     Dates: start: 20130927, end: 20131015
  3. RENIVACE [Concomitant]
     Active Substance: ENALAPRIL
     Indication: OXYGEN SATURATION DECREASED
     Dosage: UNK
     Dates: end: 20151105
  4. PREDONINE [Concomitant]
     Active Substance: PREDNISOLONE\PREDNISOLONE ACETATE\PREDNISOLONE SODIUM SUCCINATE
     Dosage: UNK
     Dates: end: 20150130
  5. TRANSAMIN [Concomitant]
     Active Substance: TRANEXAMIC ACID
     Indication: PROTEIN-LOSING GASTROENTEROPATHY
     Dosage: UNK
     Dates: start: 20140516, end: 20151105
  6. AMBRISENTAN [Suspect]
     Active Substance: AMBRISENTAN
     Dosage: 2.25 MG, BID
     Route: 048
     Dates: start: 20150914, end: 20151105
  7. FUROSEMIDE. [Concomitant]
     Active Substance: FUROSEMIDE
     Indication: PULMONARY OEDEMA
     Dosage: UNK
  8. ADCIRCA [Suspect]
     Active Substance: TADALAFIL
     Dosage: UNK
     Route: 048
     Dates: start: 20150915, end: 20151105
  9. EXCEGRAN [Concomitant]
     Active Substance: ZONISAMIDE
     Dosage: UNK
     Dates: start: 201311, end: 20151105
  10. SPIRONOLACTONE. [Concomitant]
     Active Substance: SPIRONOLACTONE
     Indication: PULMONARY OEDEMA
  11. ALDACTONE A [Concomitant]
     Active Substance: SPIRONOLACTONE
     Indication: OXYGEN SATURATION DECREASED
     Dosage: UNK
  12. PREDONINE [Concomitant]
     Active Substance: PREDNISOLONE\PREDNISOLONE ACETATE\PREDNISOLONE SODIUM SUCCINATE
     Dosage: UNK
     Dates: start: 20150131, end: 20151105
  13. E KEPPRA [Concomitant]
     Active Substance: LEVETIRACETAM
     Dosage: UNK
     Dates: start: 201311, end: 20151105
  14. LOPEMIN                            /00384302/ [Concomitant]
     Active Substance: LOPERAMIDE HYDROCHLORIDE
     Dosage: UNK
     Dates: start: 20140310, end: 20140530
  15. SAMSCA [Concomitant]
     Active Substance: TOLVAPTAN
     Indication: OXYGEN SATURATION DECREASED
     Dosage: UNK
     Dates: start: 20150203, end: 20151105
  16. WARFARIN [Concomitant]
     Active Substance: WARFARIN
     Indication: OXYGEN SATURATION DECREASED
     Dosage: UNK
     Dates: end: 20150130
  17. WARFARIN [Concomitant]
     Active Substance: WARFARIN
     Dosage: UNK
     Dates: start: 20150131, end: 20151105
  18. AMBRISENTAN [Suspect]
     Active Substance: AMBRISENTAN
     Dosage: 1.75 MG, BID
     Route: 048
     Dates: start: 20131015, end: 20150913
  19. ADCIRCA [Suspect]
     Active Substance: TADALAFIL
     Indication: OXYGEN SATURATION DECREASED
     Dosage: UNK
     Route: 048
     Dates: end: 20150914
  20. SPIRONOLACTONE. [Concomitant]
     Active Substance: SPIRONOLACTONE
     Indication: OXYGEN SATURATION DECREASED
     Dosage: 75 MG, BID
     Dates: end: 20151105

REACTIONS (21)
  - Upper respiratory tract inflammation [Recovering/Resolving]
  - Gastroenteritis [Recovering/Resolving]
  - Anaemia [Not Recovered/Not Resolved]
  - Hyperbilirubinaemia [Fatal]
  - Pharyngitis [Recovering/Resolving]
  - Hyponatraemia [Recovering/Resolving]
  - Ischaemic hepatitis [Fatal]
  - Liver disorder [Fatal]
  - Cerebral haemorrhage [Recovering/Resolving]
  - Arteriovenous malformation [Recovering/Resolving]
  - Pharyngitis [Recovering/Resolving]
  - Cardiac failure [Fatal]
  - Prerenal failure [Fatal]
  - Hepatic failure [Fatal]
  - Pharyngitis [Recovering/Resolving]
  - Upper respiratory tract inflammation [Recovering/Resolving]
  - Anaemia [Recovering/Resolving]
  - Off label use [Not Recovered/Not Resolved]
  - Pulmonary oedema [Unknown]
  - Pharyngitis [Recovering/Resolving]
  - Pharyngitis [Not Recovered/Not Resolved]

NARRATIVE: CASE EVENT DATE: 20130927
